FAERS Safety Report 4370513-X (Version None)
Quarter: 2004Q2

REPORT INFORMATION
  Report Type: 
  Country: None (occurrence: None)
  Receive Date: 20040528
  Receipt Date: 20040518
  Transmission Date: 20050107
  Serious: Yes (Other)
  Sender: FDA-Public Use
  Company Number: ENT-2004-0053

PATIENT
  Age: 59 Year
  Sex: Male

DRUGS (4)
  1. COMTAN [Suspect]
  2. SINEMET [Concomitant]
  3. AMANDATINE [Concomitant]
  4. MIRAPEX [Concomitant]

REACTIONS (1)
  - SPEECH DISORDER [None]
